FAERS Safety Report 4498598-0 (Version None)
Quarter: 2004Q4

REPORT INFORMATION
  Report Type: 
  Country: None (occurrence: None)
  Receive Date: 20041108
  Receipt Date: 20041026
  Transmission Date: 20050328
  Serious: Yes (Hospitalization)
  Sender: FDA-Public Use
  Company Number: HQWYE125927OCT04

PATIENT
  Age: 80 Year
  Sex: Male
  Weight: 66 kg

DRUGS (1)
  1. MYLOTARG [Suspect]
     Indication: ACUTE MYELOID LEUKAEMIA
     Dosage: 16 MG 1 X PER 1 DAY, INTRAVENOUS
     Route: 042
     Dates: start: 20041019, end: 20041019

REACTIONS (2)
  - CHILLS [None]
  - FEBRILE NEUTROPENIA [None]
